FAERS Safety Report 9441193 (Version 1)
Quarter: 2013Q3

REPORT INFORMATION
  Report Type: Spontaneous
  Country: US (occurrence: None)
  Receive Date: 20130801
  Receipt Date: 20130801
  Transmission Date: 20140515
  Serious: Yes (Life-Threatening, Other)
  Sender: FDA-Public Use
  Company Number: 2013/151

PATIENT
  Age: 46 Year
  Sex: Male

DRUGS (11)
  1. TERBINAFINE (NO PREF. NAME) 250 MG [Suspect]
     Indication: ONYCHOMYCOSIS
     Route: 048
     Dates: start: 20130409, end: 20130513
  2. ALFUZOSIN [Concomitant]
  3. ATENOLOL [Concomitant]
  4. ETORICOXIB [Concomitant]
  5. FOLIC ACID [Concomitant]
  6. HYDROXYCHLOROQUINE [Concomitant]
  7. LANSOPRAZOLE [Concomitant]
  8. METHOTREXATE [Concomitant]
  9. MIRTAZAPINE [Concomitant]
  10. BETAMETHASONE DIPROPIONATE -CALCIPORTRIOL MONOHYDRATE (DOVOBET) [Concomitant]
  11. DIHYDROCODEINE TARTRATE-PARACETAMOL (REMEDEINE) [Concomitant]

REACTIONS (6)
  - Erythrodermic psoriasis [None]
  - Feeling hot [None]
  - Eye swelling [None]
  - Miliaria [None]
  - Rash generalised [None]
  - Skin exfoliation [None]
